FAERS Safety Report 21978410 (Version 2)
Quarter: 2023Q1

REPORT INFORMATION
  Report Type: Spontaneous
  Country: US (occurrence: US)
  Receive Date: 20230210
  Receipt Date: 20230330
  Transmission Date: 20230418
  Serious: No
  Sender: FDA-Public Use
  Company Number: US-GSKCCFUS-Case-01617321_AE-91348

PATIENT
  Sex: Male

DRUGS (7)
  1. NUCALA [Suspect]
     Active Substance: MEPOLIZUMAB
     Indication: Asthma
     Dosage: UNK
     Dates: start: 202111
  2. ZYRTEC [Suspect]
     Active Substance: CETIRIZINE HYDROCHLORIDE
     Indication: Product used for unknown indication
     Dosage: UNK
  3. AZELASTINE [Suspect]
     Active Substance: AZELASTINE
     Indication: Sinus congestion
     Dosage: UNK
  4. FLONASE [Suspect]
     Active Substance: FLUTICASONE PROPIONATE
     Indication: Sneezing
     Dosage: UNK
  5. FLONASE [Suspect]
     Active Substance: FLUTICASONE PROPIONATE
     Indication: Sinus congestion
  6. FLONASE [Suspect]
     Active Substance: FLUTICASONE PROPIONATE
     Indication: Rhinorrhoea
  7. FLONASE [Suspect]
     Active Substance: FLUTICASONE PROPIONATE
     Indication: Ear pruritus

REACTIONS (12)
  - Sneezing [Unknown]
  - Rhinorrhoea [Unknown]
  - Ear pruritus [Unknown]
  - Sinus congestion [Unknown]
  - Sinus disorder [Unknown]
  - Sinusitis [Unknown]
  - Headache [Unknown]
  - Pruritus [Unknown]
  - Insomnia [Unknown]
  - Body temperature increased [Unknown]
  - Dyspepsia [Unknown]
  - Gastrointestinal disorder [Unknown]
